FAERS Safety Report 5957197-1 (Version None)
Quarter: 2008Q4

REPORT INFORMATION
  Report Type: 
  Country: None (occurrence: None)
  Receive Date: 20081118
  Receipt Date: 20081110
  Transmission Date: 20090506
  Serious: Yes (Death)
  Sender: FDA-Public Use
  Company Number: GB-PFIZER INC-2008096741

PATIENT
  Age: 30 Month

DRUGS (5)
  1. ANTI-THYMOCYTE GLOBULIN NOS [Suspect]
     Indication: CORD BLOOD TRANSPLANT THERAPY
  2. CYCLOPHOSPHAMIDE [Suspect]
     Indication: CORD BLOOD TRANSPLANT THERAPY
  3. CYCLOSPORINE [Suspect]
     Indication: CORD BLOOD TRANSPLANT THERAPY
  4. FLUDARABINE PHOSPHATE [Suspect]
     Indication: CORD BLOOD TRANSPLANT THERAPY
  5. TREOSULFAN [Suspect]
     Indication: CORD BLOOD TRANSPLANT THERAPY

REACTIONS (3)
  - ACUTE GRAFT VERSUS HOST DISEASE [None]
  - ADENOVIRAL HEPATITIS [None]
  - EVANS SYNDROME [None]
